FAERS Safety Report 19694941 (Version 1)
Quarter: 2021Q3

REPORT INFORMATION
  Report Type: Spontaneous
  Country: US (occurrence: US)
  Receive Date: 20210813
  Receipt Date: 20210813
  Transmission Date: 20211014
  Serious: No
  Sender: FDA-Public Use
  Company Number: US-JNJFOC-20210816767

PATIENT
  Sex: Female

DRUGS (1)
  1. ELMIRON [Suspect]
     Active Substance: PENTOSAN POLYSULFATE SODIUM
     Indication: GENERAL PHYSICAL CONDITION ABNORMAL
     Route: 048
     Dates: start: 201212, end: 202010

REACTIONS (4)
  - Vision blurred [Unknown]
  - Metamorphopsia [Unknown]
  - Delayed dark adaptation [Unknown]
  - Visual impairment [Unknown]
